FAERS Safety Report 5732549-3 (Version None)
Quarter: 2008Q2

REPORT INFORMATION
  Report Type: 
  Country: None (occurrence: None)
  Receive Date: 20080507
  Receipt Date: 20080422
  Transmission Date: 20081010
  Serious: Yes (Other)
  Sender: FDA-Public Use
  Company Number: JPKYO-L-20080001

PATIENT
  Age: 67 Year
  Sex: Male

DRUGS (4)
  1. NAVELBINE [Suspect]
     Indication: LUNG CARCINOMA CELL TYPE UNSPECIFIED STAGE IV
     Dosage: 31 MG QD IV
     Route: 042
     Dates: start: 20060327, end: 20060403
  2. NAVELBINE [Suspect]
     Indication: LUNG CARCINOMA CELL TYPE UNSPECIFIED STAGE IV
  3. GEMZAR [Suspect]
     Indication: LUNG CARCINOMA CELL TYPE UNSPECIFIED STAGE IV
     Dosage: 1200 MG QD IV
     Route: 042
     Dates: start: 20060327, end: 20060403
  4. DECADRON [Concomitant]

REACTIONS (2)
  - MALIGNANT NEOPLASM PROGRESSION [None]
  - RADIATION PNEUMONITIS [None]
